FAERS Safety Report 23689999 (Version 1)
Quarter: 2024Q2

REPORT INFORMATION
  Report Type: Spontaneous
  Country: US (occurrence: US)
  Receive Date: 20240401
  Receipt Date: 20240401
  Transmission Date: 20240716
  Serious: No
  Sender: FDA-Public Use
  Company Number: US-GILEAD-2024-0667299

PATIENT
  Age: 27 Year
  Sex: Male

DRUGS (1)
  1. DESCOVY [Suspect]
     Active Substance: EMTRICITABINE\TENOFOVIR ALAFENAMIDE FUMARATE
     Indication: Prophylaxis against HIV infection
     Dosage: 225 MG, QD
     Route: 048
     Dates: start: 20240325

REACTIONS (6)
  - Cough [Unknown]
  - Sputum increased [Unknown]
  - Head discomfort [Unknown]
  - Feeling drunk [Unknown]
  - Dizziness [Not Recovered/Not Resolved]
  - Somnolence [Not Recovered/Not Resolved]

NARRATIVE: CASE EVENT DATE: 20240325
